FAERS Safety Report 24283562 (Version 1)
Quarter: 2024Q3

REPORT INFORMATION
  Report Type: Spontaneous
  Country: JP (occurrence: JP)
  Receive Date: 20240904
  Receipt Date: 20240904
  Transmission Date: 20241017
  Serious: Yes (Other)
  Sender: RADIUS PHARM
  Company Number: JP-RADIUS HEALTH INC.-2024JP006484

PATIENT
  Age: 66 Year
  Sex: Female

DRUGS (3)
  1. ABALOPARATIDE [Suspect]
     Active Substance: ABALOPARATIDE
     Indication: Osteoporosis
     Dosage: 80 MICROGRAM, QD
     Route: 058
     Dates: start: 20240819, end: 20240819
  2. AZELNIDIPINE [Concomitant]
     Active Substance: AZELNIDIPINE
     Indication: Hypertension
     Route: 048
  3. EPINASTINE HYDROCHLORIDE [Concomitant]
     Active Substance: EPINASTINE HYDROCHLORIDE
     Indication: Product used for unknown indication
     Route: 065

REACTIONS (3)
  - Toothache [Recovered/Resolved]
  - Neck pain [Recovered/Resolved]
  - Back pain [Recovered/Resolved]

NARRATIVE: CASE EVENT DATE: 20240819
